FAERS Safety Report 12426610 (Version 7)
Quarter: 2021Q2

REPORT INFORMATION
  Report Type: Report from Study
  Country: CA (occurrence: CA)
  Receive Date: 20160601
  Receipt Date: 20210528
  Transmission Date: 20210716
  Serious: Yes (Other)
  Sender: FDA-Public Use
  Company Number: PHHY2013CA144082

PATIENT
  Age: 83 Year
  Sex: Female

DRUGS (3)
  1. SANDOSTATIN LAR DEPOT [Suspect]
     Active Substance: OCTREOTIDE ACETATE
     Indication: NEUROENDOCRINE TUMOUR
     Dosage: 20 MG, QMO (ONCE A MONTH)
     Route: 030
     Dates: start: 20131105
  2. SANDOSTATIN LAR DEPOT [Suspect]
     Active Substance: OCTREOTIDE ACETATE
     Dosage: 30 MG, QMO (EVERY 4 WEEKS)
     Route: 030
     Dates: start: 20160330
  3. SANDOSTATIN LAR DEPOT [Suspect]
     Active Substance: OCTREOTIDE ACETATE
     Dosage: 20 MG, QMO (EVERY 4 WEEKS)
     Route: 030
     Dates: end: 20160303

REACTIONS (38)
  - Malignant neoplasm progression [Unknown]
  - Ligament sprain [Unknown]
  - Needle issue [Unknown]
  - Diabetes mellitus [Unknown]
  - Gait disturbance [Unknown]
  - Injection site swelling [Unknown]
  - Neuroendocrine tumour [Unknown]
  - Ocular hyperaemia [Recovered/Resolved]
  - Blood pressure systolic increased [Unknown]
  - Weight increased [Unknown]
  - Lymphadenopathy [Unknown]
  - Abdominal distension [Unknown]
  - Abdominal pain [Recovered/Resolved]
  - Mass [Unknown]
  - Injection site haemorrhage [Unknown]
  - Eye pruritus [Recovered/Resolved]
  - Osteoarthritis [Unknown]
  - Lichen planus [Unknown]
  - Erythema [Unknown]
  - Constipation [Recovering/Resolving]
  - Nausea [Unknown]
  - Arthralgia [Recovered/Resolved]
  - Injection site pain [Unknown]
  - Fall [Unknown]
  - Oedema [Unknown]
  - Vulvovaginal discomfort [Unknown]
  - Productive cough [Unknown]
  - Eructation [Unknown]
  - Flatulence [Unknown]
  - Back pain [Recovered/Resolved]
  - Dizziness [Unknown]
  - Blood pressure diastolic decreased [Unknown]
  - Fatigue [Recovered/Resolved]
  - Diarrhoea [Recovering/Resolving]
  - Body temperature decreased [Unknown]
  - Abnormal faeces [Recovered/Resolved]
  - Joint swelling [Unknown]
  - Heart rate decreased [Unknown]

NARRATIVE: CASE EVENT DATE: 20140528
